FAERS Safety Report 13615813 (Version 3)
Quarter: 2018Q1

REPORT INFORMATION
  Report Type: Spontaneous
  Country: KR (occurrence: KR)
  Receive Date: 20170606
  Receipt Date: 20180117
  Transmission Date: 20180508
  Serious: Yes (Disabling, Other)
  Sender: FDA-Public Use
  Company Number: KR-PFIZER INC-2017241687

PATIENT
  Age: 47 Year
  Sex: Female

DRUGS (2)
  1. LIDOCAINE. [Suspect]
     Active Substance: LIDOCAINE
     Dosage: UNK
     Route: 058
  2. EPINEPHRINE. [Suspect]
     Active Substance: EPINEPHRINE
     Dosage: 1 : 100,000
     Route: 058

REACTIONS (1)
  - Retinal artery occlusion [Not Recovered/Not Resolved]
